FAERS Safety Report 16908221 (Version 2)
Quarter: 2019Q4

REPORT INFORMATION
  Report Type: Spontaneous
  Country: JP (occurrence: JP)
  Receive Date: 20191011
  Receipt Date: 20191105
  Transmission Date: 20200122
  Serious: Yes (Other)
  Sender: FDA-Public Use
  Company Number: JP-AMGEN-JPNSP2019167970

PATIENT
  Age: 79 Year
  Sex: Female

DRUGS (2)
  1. TERIBONE [Concomitant]
     Active Substance: TERIPARATIDE ACETATE
     Indication: LUMBAR VERTEBRAL FRACTURE
     Dosage: UNK
  2. EVENITY [Suspect]
     Active Substance: ROMOSOZUMAB-AQQG
     Indication: OSTEOPOROSIS
     Dosage: 210 MILLIGRAM
     Route: 058
     Dates: start: 20190312, end: 201909

REACTIONS (4)
  - Gastrointestinal polyp [Unknown]
  - Memory impairment [Unknown]
  - Vomiting [Recovered/Resolved]
  - Administration site pruritus [Unknown]

NARRATIVE: CASE EVENT DATE: 2019
